FAERS Safety Report 4866595-9 (Version None)
Quarter: 2005Q4

REPORT INFORMATION
  Report Type: 
  Country: None (occurrence: None)
  Receive Date: 20051221
  Receipt Date: 20051206
  Transmission Date: 20060501
  Serious: Yes (Hospitalization, Other)
  Sender: FDA-Public Use
  Company Number: DE-2005-002764

PATIENT
  Age: 46 Year
  Sex: Female

DRUGS (1)
  1. BETAFERON (INTERFERON BETA - 1B) INJECTION, 250UG [Suspect]
     Dosage: SUBCUTANEOUS
     Route: 058
     Dates: start: 20030101

REACTIONS (5)
  - CARDIOVASCULAR DISORDER [None]
  - HYPERTENSION [None]
  - PAIN IN EXTREMITY [None]
  - PALPITATIONS [None]
  - PYREXIA [None]
